FAERS Safety Report 4288732-X (Version None)
Quarter: 2004Q1

REPORT INFORMATION
  Report Type: 
  Country: None (occurrence: None)
  Receive Date: 20040130
  Receipt Date: 20030114
  Transmission Date: 20041129
  Serious: Yes (Other)
  Sender: FDA-Public Use
  Company Number: SOS-2002-068

PATIENT
  Sex: Female
  Weight: 70.3075 kg

DRUGS (1)
  1. ANTABUSE [Suspect]
     Indication: ALCOHOLISM
     Dosage: 250 MG TWICE DAILY, PO
     Route: 048
     Dates: start: 20021225

REACTIONS (1)
  - VAGINAL HAEMORRHAGE [None]
